FAERS Safety Report 9269604 (Version 1)
Quarter: 2013Q2

REPORT INFORMATION
  Report Type: Spontaneous
  Country: BR (occurrence: BR)
  Receive Date: 20130503
  Receipt Date: 20130503
  Transmission Date: 20140414
  Serious: Yes (Other)
  Sender: FDA-Public Use
  Company Number: BR-NOVOPROD-376404

PATIENT
  Age: 46 Year
  Sex: Female
  Weight: 75 kg

DRUGS (2)
  1. VICTOZA [Suspect]
     Indication: WEIGHT CONTROL
     Dosage: 1.8 MG, UNK
     Route: 058
     Dates: start: 201212
  2. CEPHALEXINE [Concomitant]
     Dosage: 1 TAB
     Route: 048
     Dates: start: 20130123

REACTIONS (1)
  - Skin cancer [Unknown]
